FAERS Safety Report 12191222 (Version 1)
Quarter: 2016Q1

REPORT INFORMATION
  Report Type: Report from Study
  Country: CA (occurrence: CA)
  Receive Date: 20160318
  Receipt Date: 20160318
  Transmission Date: 20160526
  Serious: Yes (Other)
  Sender: FDA-Public Use
  Company Number: CA-JNJFOC-20160222403

PATIENT
  Sex: Male

DRUGS (2)
  1. REMICADE [Suspect]
     Active Substance: INFLIXIMAB
     Indication: CROHN^S DISEASE
     Route: 042
     Dates: start: 20151113
  2. ALTACE [Concomitant]
     Active Substance: RAMIPRIL
     Route: 065

REACTIONS (3)
  - Stoma site haemorrhage [Unknown]
  - Skin discolouration [Unknown]
  - Rash pruritic [Not Recovered/Not Resolved]
